FAERS Safety Report 7251318-9 (Version None)
Quarter: 2011Q1

REPORT INFORMATION
  Report Type: 
  Country: None (occurrence: None)
  Receive Date: 20110128
  Receipt Date: 20110119
  Transmission Date: 20110831
  Serious: Yes (Other)
  Sender: FDA-Public Use
  Company Number: US-ASTRAZENECA-2010SE60717

PATIENT
  Sex: Female

DRUGS (3)
  1. TRAMADOL [Concomitant]
  2. NEXIUM [Suspect]
     Route: 048
  3. DARVOCET-N 100 [Suspect]
     Route: 065

REACTIONS (6)
  - CARDIAC DISORDER [None]
  - SPINAL COLUMN INJURY [None]
  - MUSCULOSKELETAL DISCOMFORT [None]
  - ARTHRITIS [None]
  - FALL [None]
  - HEADACHE [None]
